FAERS Safety Report 9177306 (Version 5)
Quarter: 2013Q2

REPORT INFORMATION
  Report Type: Spontaneous
  Country: PL (occurrence: None)
  Receive Date: 20130319
  Receipt Date: 20130524
  Transmission Date: 20140414
  Serious: Yes (Other)
  Sender: FDA-Public Use
  Company Number: AUR-APL-2013-02198

PATIENT
  Age: 67 Year
  Sex: Female
  Weight: 43 kg

DRUGS (10)
  1. GABAPENTIN [Suspect]
     Indication: HYPERTENSION
     Dosage: 200 MG (100 MG, 2 IN 1 D), PO
     Route: 048
     Dates: start: 20121102
  2. CLONAZEPAM (CLONAZEPAM) (CLONAZEPAM) [Concomitant]
  3. EFFERALGAN CODEINE (PANADEINECO) [Concomitant]
  4. MICARDIS (TELMISARTAN) [Concomitant]
  5. BISOCARD (BISOPROLOL) [Concomitant]
  6. DIURESIN SR (INDAPAMIDE) [Concomitant]
  7. KALDYUM (POTASSIUM CHLORIDE) [Concomitant]
  8. EUTHYROX (LEVOTHYROXINE SODIUM)(TABLET)(LEVOTHYROXINE SODIUM) [Concomitant]
  9. ETOPIRYNA (ETOPIRYNA) [Concomitant]
  10. ESTROFEM (ESTRADIOL) [Concomitant]

REACTIONS (6)
  - Asthenia [None]
  - Balance disorder [None]
  - Confusional state [None]
  - Blood pressure systolic decreased [None]
  - Balance disorder [None]
  - Off label use [None]
